FAERS Safety Report 8916526 (Version 1)
Quarter: 2012Q4

REPORT INFORMATION
  Report Type: 
  Country: FR (occurrence: FR)
  Receive Date: 20121120
  Receipt Date: 20121120
  Transmission Date: 20130627
  Serious: Yes (Hospitalization)
  Sender: FDA-Public Use
  Company Number: FR-ROCHE-54865

PATIENT
  Age: 63 Year
  Sex: Male

DRUGS (1)
  1. ROCEPHINE [Suspect]
     Indication: PROPHYLAXIS
     Route: 042
     Dates: start: 19930809, end: 19930809

REACTIONS (1)
  - Renal failure acute [Unknown]
